FAERS Safety Report 13022179 (Version 4)
Quarter: 2017Q3

REPORT INFORMATION
  Report Type: Spontaneous
  Country: US (occurrence: US)
  Receive Date: 20161213
  Receipt Date: 20170831
  Transmission Date: 20171127
  Serious: Yes (Hospitalization, Other)
  Sender: FDA-Public Use
  Company Number: US-PFIZER INC-2016569020

PATIENT
  Age: 53 Year
  Sex: Female

DRUGS (1)
  1. XELJANZ [Suspect]
     Active Substance: TOFACITINIB CITRATE
     Indication: RHEUMATOID ARTHRITIS
     Dosage: 5 MG, 2X/DAY
     Dates: start: 20151122, end: 20161104

REACTIONS (11)
  - Pain [Unknown]
  - Loss of personal independence in daily activities [Unknown]
  - Dysstasia [Not Recovered/Not Resolved]
  - Neuropathy peripheral [Unknown]
  - Asthenia [Unknown]
  - Nerve injury [Unknown]
  - Gait inability [Not Recovered/Not Resolved]
  - Condition aggravated [Unknown]
  - Walking disability [Not Recovered/Not Resolved]
  - Chronic inflammatory demyelinating polyradiculoneuropathy [Unknown]
  - Vitamin B6 deficiency [Unknown]

NARRATIVE: CASE EVENT DATE: 201606
